FAERS Safety Report 6937683-8 (Version None)
Quarter: 2010Q3

REPORT INFORMATION
  Report Type: 
  Country: None (occurrence: None)
  Receive Date: 20100820
  Receipt Date: 20100820
  Transmission Date: 20110219
  Serious: Yes (Hospitalization)
  Sender: FDA-Public Use
  Company Number: None

PATIENT
  Sex: Female
  Weight: 46 kg

DRUGS (7)
  1. DAUNORUBICIN HCL [Suspect]
     Dosage: 74 MG
  2. METHOTREXATE [Suspect]
     Dosage: 15 MG
  3. PEG-L-ASPARAGINASE (K-H) [Suspect]
     Dosage: 3700 UNIT
  4. PREDNISONE [Suspect]
     Dosage: 1170 MG
  5. VINCRISTINE SULFATE [Suspect]
     Dosage: 4 MG
  6. CYTARABINE [Suspect]
     Dosage: 70 MG
  7. INSULIN [Concomitant]

REACTIONS (2)
  - MULTI-ORGAN FAILURE [None]
  - PSEUDOMONAL SEPSIS [None]
